FAERS Safety Report 8053980-X (Version None)
Quarter: 2012Q1

REPORT INFORMATION
  Report Type: 
  Country: None (occurrence: None)
  Receive Date: 20120118
  Receipt Date: 20120112
  Transmission Date: 20120608
  Serious: Yes (Hospitalization, Other)
  Sender: FDA-Public Use
  Company Number: GR-ABBOTT-12P-066-0893367-00

PATIENT
  Sex: Female
  Weight: 69 kg

DRUGS (6)
  1. COZAAR [Concomitant]
     Indication: HYPERTENSION
     Route: 048
     Dates: start: 20060101
  2. LACIPID [Concomitant]
     Indication: HYPERTENSION
     Dosage: 4 MG 1/2 X 2 DAILY
     Dates: start: 20060101
  3. MIRCERA [Concomitant]
     Indication: NEPHROGENIC ANAEMIA
     Route: 058
     Dates: start: 20100101
  4. ALLOPURINOL [Concomitant]
     Indication: HYPERURICAEMIA
     Dosage: 1/2 X 1
     Route: 048
     Dates: start: 20080101
  5. LEXOTANIL [Concomitant]
     Indication: DEPRESSION
     Route: 048
     Dates: start: 20000101
  6. ZEMPLAR [Suspect]
     Indication: HYPERPARATHYROIDISM SECONDARY
     Dosage: 3 MG/WEEKLY
     Route: 048
     Dates: start: 20100801

REACTIONS (1)
  - OSTEOARTHRITIS [None]
